FAERS Safety Report 10211730 (Version 1)
Quarter: 2014Q2

REPORT INFORMATION
  Report Type: Spontaneous
  Country: DK (occurrence: DE)
  Receive Date: 20140602
  Receipt Date: 20140602
  Transmission Date: 20141212
  Serious: Yes (Other)
  Sender: FDA-Public Use
  Company Number: DE-FRI-1000067837

PATIENT
  Age: 29 Year
  Sex: Female

DRUGS (3)
  1. ESCITALOPRAM [Suspect]
     Indication: DEPRESSION
     Dosage: 10-15 MG
     Route: 048
     Dates: start: 20120212, end: 20121117
  2. IBUPROFEN [Concomitant]
     Indication: TENSION HEADACHE
     Dosage: 800 MG, IF REQUIRED
     Route: 048
  3. FOLIC ACID [Concomitant]
     Indication: PROPHYLAXIS OF NEURAL TUBE DEFECT
     Route: 048

REACTIONS (4)
  - Cervical incompetence [Unknown]
  - Bacterial infection [Unknown]
  - Gestational hypertension [Unknown]
  - Caesarean section [Unknown]
